FAERS Safety Report 10170255 (Version 1)
Quarter: 2014Q2

REPORT INFORMATION
  Report Type: Spontaneous
  Country: US (occurrence: US)
  Receive Date: 20140513
  Receipt Date: 20140513
  Transmission Date: 20141212
  Serious: No
  Sender: FDA-Public Use
  Company Number: US-009507513-1405USA003249

PATIENT
  Age: 78 Year
  Sex: Female

DRUGS (1)
  1. OXYTROL FOR WOMEN [Suspect]
     Indication: HYPERTONIC BLADDER
     Dosage: UNK, ONCE
     Route: 062
     Dates: start: 20140430, end: 20140430

REACTIONS (4)
  - Panic attack [Unknown]
  - Heart rate increased [Unknown]
  - Fear [Unknown]
  - Drug administered at inappropriate site [Unknown]
